FAERS Safety Report 10143430 (Version 2)
Quarter: 2014Q2

REPORT INFORMATION
  Report Type: Report from Study
  Country: FI (occurrence: FI)
  Receive Date: 20140430
  Receipt Date: 20140521
  Transmission Date: 20141212
  Serious: Yes (Hospitalization)
  Sender: FDA-Public Use
  Company Number: FI-CELGENEUS-055-21880-14043147

PATIENT
  Age: 59 Year
  Sex: Female
  Weight: 67.4 kg

DRUGS (3)
  1. REVLIMID [Suspect]
     Indication: PLASMA CELL MYELOMA
     Dosage: 25 MILLIGRAM
     Route: 048
     Dates: start: 20140401, end: 20140414
  2. VELCADE [Suspect]
     Indication: PLASMA CELL MYELOMA
     Route: 065
     Dates: start: 20140401, end: 20140414
  3. DEXAMETHASONE [Suspect]
     Indication: PLASMA CELL MYELOMA
     Route: 065
     Dates: start: 20140401, end: 20140414

REACTIONS (3)
  - Hypercalcaemia [Not Recovered/Not Resolved]
  - Lung infection [Not Recovered/Not Resolved]
  - Plasma cell myeloma [Unknown]
